FAERS Safety Report 25847296 (Version 1)
Quarter: 2025Q3

REPORT INFORMATION
  Report Type: Spontaneous
  Country: US (occurrence: US)
  Receive Date: 20250925
  Receipt Date: 20250925
  Transmission Date: 20251020
  Serious: No
  Sender: LAVIPHARM
  Company Number: US-Lavipharm SA-2185282

PATIENT
  Age: 85 Year
  Sex: Female

DRUGS (3)
  1. CLONIDINE TRANSDERMAL SYSTEM USP, 0.3 MG/DAY [Suspect]
     Active Substance: CLONIDINE
     Indication: Hypertension
     Dates: start: 20250628
  2. MULTAQ [Concomitant]
     Active Substance: DRONEDARONE
  3. DILTIAZEM [Concomitant]
     Active Substance: DILTIAZEM

REACTIONS (2)
  - Drug ineffective [Recovered/Resolved]
  - Product with quality issue administered [Unknown]

NARRATIVE: CASE EVENT DATE: 20250628
